FAERS Safety Report 4952210-2 (Version None)
Quarter: 2006Q1

REPORT INFORMATION
  Report Type: 
  Country: None (occurrence: None)
  Receive Date: 20060323
  Receipt Date: 20051017
  Transmission Date: 20060701
  Serious: Yes (Disabling, Other)
  Sender: FDA-Public Use
  Company Number: BEWYE059917OCT05

PATIENT
  Age: 55 Year
  Sex: Female

DRUGS (5)
  1. ENBREL [Suspect]
     Indication: PSORIATIC ARTHROPATHY
     Route: 058
     Dates: start: 20040313
  2. LORAMET [Concomitant]
     Dosage: UNKNOWN
     Route: 048
  3. TRAZODONE HCL [Concomitant]
     Dosage: UNKNOWN
     Route: 045
  4. EFFEXOR [Concomitant]
     Dosage: UNKNOWN
     Route: 048
  5. PROTHIADEN [Concomitant]
     Dosage: UNKNOWN
     Route: 048

REACTIONS (1)
  - ENDOPHTHALMITIS [None]
